FAERS Safety Report 4554089-X (Version None)
Quarter: 2005Q1

REPORT INFORMATION
  Report Type: 
  Country: None (occurrence: None)
  Receive Date: 20050118
  Receipt Date: 20020319
  Transmission Date: 20050727
  Serious: Yes (Other)
  Sender: FDA-Public Use
  Company Number: US-MERCK-0203USA02022

PATIENT
  Age: 63 Year
  Sex: Male
  Weight: 70 kg

DRUGS (8)
  1. LOTENSIN [Concomitant]
     Route: 065
     Dates: start: 19980101
  2. NORVASC [Concomitant]
     Route: 065
     Dates: start: 19980101
  3. ZOCOR [Concomitant]
     Route: 048
     Dates: start: 19990101
  4. ASPIRIN [Concomitant]
     Route: 065
     Dates: start: 20000101
  5. ADVIL [Concomitant]
     Route: 065
  6. AVANDIA [Concomitant]
     Route: 065
  7. GLYBURIDE [Concomitant]
     Route: 065
  8. VIOXX [Suspect]
     Indication: SCIATICA
     Route: 048
     Dates: start: 20010220, end: 20010315

REACTIONS (18)
  - ARRHYTHMIA [None]
  - BACK PAIN [None]
  - BASAL CELL CARCINOMA [None]
  - CATARACT [None]
  - CEREBROVASCULAR ACCIDENT [None]
  - DYSGEUSIA [None]
  - GINGIVAL RECESSION [None]
  - HYPOAESTHESIA [None]
  - HYPOAESTHESIA ORAL [None]
  - OSTEOARTHRITIS [None]
  - PAIN IN EXTREMITY [None]
  - PALPITATIONS [None]
  - PARAESTHESIA [None]
  - ROTATOR CUFF SYNDROME [None]
  - SCAB [None]
  - SEBORRHOEIC KERATOSIS [None]
  - SINUSITIS [None]
  - SPINAL OSTEOARTHRITIS [None]
